FAERS Safety Report 8169899-X (Version None)
Quarter: 2012Q1

REPORT INFORMATION
  Report Type: 
  Country: None (occurrence: None)
  Receive Date: 20120228
  Receipt Date: 20120220
  Transmission Date: 20120608
  Serious: Yes (Other)
  Sender: FDA-Public Use
  Company Number: DE-PFIZER INC-2012049759

PATIENT
  Age: 58 Year
  Sex: Female

DRUGS (8)
  1. PANTOPRAZOLE [Suspect]
     Dosage: 40 MG, UNK
  2. QUETIAPINE FUMARATE [Suspect]
  3. METOPROLOL [Suspect]
  4. SERTRALINE HYDROCHLORIDE [Suspect]
  5. ALCOHOL [Suspect]
  6. RAMIPRIL [Suspect]
  7. CLONIDINE [Suspect]
  8. OXAZEPAM [Suspect]

REACTIONS (2)
  - DYSPNOEA [None]
  - SUICIDE ATTEMPT [None]
